FAERS Safety Report 9498379 (Version 2)
Quarter: 2013Q3

REPORT INFORMATION
  Report Type: Spontaneous
  Country: FR (occurrence: FR)
  Receive Date: 20130904
  Receipt Date: 20130904
  Transmission Date: 20140515
  Serious: Yes (Other)
  Sender: FDA-Public Use
  Company Number: FR-ELI_LILLY_AND_COMPANY-FR201306007835

PATIENT
  Age: 17 Year
  Sex: Female
  Weight: 75 kg

DRUGS (3)
  1. CYMBALTA [Suspect]
     Indication: DEPRESSION
     Dosage: 60 MG, UNKNOWN
     Route: 048
     Dates: start: 20130530, end: 20130605
  2. LYSANXIA [Concomitant]
     Indication: ANXIETY
     Dosage: 10 MG, UNKNOWN
     Route: 065
     Dates: start: 20130530
  3. NOCTAMIDE [Concomitant]
     Indication: INSOMNIA
     Dosage: 2 MG, UNKNOWN
     Route: 065
     Dates: start: 20130530

REACTIONS (3)
  - Rash erythematous [Recovered/Resolved]
  - Pruritus [Recovered/Resolved]
  - Off label use [Unknown]
